FAERS Safety Report 4693247-0 (Version None)
Quarter: 2005Q2

REPORT INFORMATION
  Report Type: 
  Country: None (occurrence: None)
  Receive Date: 20050311
  Receipt Date: 20050311
  Transmission Date: 20051028
  Serious: No
  Sender: FDA-Public Use
  Company Number: None

PATIENT
  Sex: Female

DRUGS (7)
  1. GENERIC IMDUR 60 MG [Suspect]
     Indication: ATRIAL FIBRILLATION
  2. GENERIC IMDUR 60 MG [Suspect]
     Indication: CARDIAC FAILURE CONGESTIVE
  3. GENERIC IMDUR 60 MG [Suspect]
     Indication: CORONARY ARTERY DISEASE
  4. INDERAL LA [Concomitant]
  5. WARFARIN [Concomitant]
  6. FUROSEMIDE [Concomitant]
  7. SPIRONOLACTONE [Concomitant]

REACTIONS (1)
  - CHEST PAIN [None]
